FAERS Safety Report 6044437-6 (Version None)
Quarter: 2009Q1

REPORT INFORMATION
  Report Type: 
  Country: None (occurrence: None)
  Receive Date: 20090115
  Receipt Date: 20090115
  Transmission Date: 20090719
  Serious: Yes (Other)
  Sender: FDA-Public Use
  Company Number: None

PATIENT
  Sex: Female
  Weight: 56.6996 kg

DRUGS (8)
  1. SINGULAIR [Suspect]
     Indication: ASTHMA
     Dosage: 1 TABLET DAILY ORAL
     Route: 048
     Dates: start: 20050901, end: 20081028
  2. ASMANEX TWISTHALER [Concomitant]
  3. ADVAIR DISKUS 100/50 [Concomitant]
  4. GENERIC ALLEGRA [Concomitant]
  5. ZYRTEC [Concomitant]
  6. NASACORT [Concomitant]
  7. MAXAIR [Concomitant]
  8. FOSAMAX [Concomitant]

REACTIONS (10)
  - ALLERGIC GRANULOMATOUS ANGIITIS [None]
  - ARTHRALGIA [None]
  - COUGH [None]
  - FATIGUE [None]
  - GROIN PAIN [None]
  - MUSCULOSKELETAL PAIN [None]
  - NIGHT SWEATS [None]
  - PAIN IN EXTREMITY [None]
  - PYREXIA [None]
  - SWELLING [None]
